FAERS Safety Report 6042047-8 (Version None)
Quarter: 2009Q1

REPORT INFORMATION
  Report Type: 
  Country: None (occurrence: None)
  Receive Date: 20090116
  Receipt Date: 20090114
  Transmission Date: 20090719
  Serious: Yes (Hospitalization, Other)
  Sender: FDA-Public Use
  Company Number: US-ASTRAZENECA-2008UW19817

PATIENT
  Age: 45 Year
  Sex: Male
  Weight: 133.8 kg

DRUGS (2)
  1. SEROQUEL [Suspect]
     Indication: SLEEP DISORDER
     Route: 048
     Dates: start: 20060207, end: 20061128
  2. ELAVIL [Concomitant]
     Dates: start: 20030101, end: 20060101

REACTIONS (4)
  - ARTHRALGIA [None]
  - DIABETES MELLITUS [None]
  - DRUG TOXICITY [None]
  - OVERDOSE [None]
